FAERS Safety Report 8397071-7 (Version None)
Quarter: 2012Q2

REPORT INFORMATION
  Report Type: 
  Country: None (occurrence: None)
  Receive Date: 20120530
  Receipt Date: 20120513
  Transmission Date: 20120825
  Serious: No
  Sender: FDA-Public Use
  Company Number: US-BAYER-2012-048123

PATIENT
  Sex: Female

DRUGS (3)
  1. PONSTEL [Concomitant]
     Indication: DYSMENORRHOEA
  2. IBUPROFEN (ADVIL) [Concomitant]
     Indication: DYSMENORRHOEA
  3. ALEVE (CAPLET) [Suspect]
     Indication: DYSMENORRHOEA

REACTIONS (1)
  - MENORRHAGIA [None]
